FAERS Safety Report 25025122 (Version 2)
Quarter: 2025Q1

REPORT INFORMATION
  Report Type: Spontaneous
  Country: US (occurrence: US)
  Receive Date: 20250228
  Receipt Date: 20250311
  Transmission Date: 20250408
  Serious: Yes (Death, Hospitalization, Other)
  Sender: NOVARTIS
  Company Number: US-SANDOZ-SDZ2025US011692

PATIENT
  Age: 74 Year
  Sex: Female
  Weight: 88.7 kg

DRUGS (32)
  1. KISQALI [Suspect]
     Active Substance: RIBOCICLIB
     Indication: Breast cancer metastatic
     Dosage: 600 MG DOSE BEGAN DAILY X 21 DAYS ON, 7 DAYS OFF, DECREASED TO 400 MG DOSE SOMETIME IN 2022
     Route: 048
     Dates: start: 20190408
  2. KISQALI [Suspect]
     Active Substance: RIBOCICLIB
     Indication: HER2 negative breast cancer
     Dosage: 400 MG, QD
     Route: 048
     Dates: start: 2022
  3. KISQALI [Suspect]
     Active Substance: RIBOCICLIB
     Dosage: 400 MG, QD (200 MG, TAKE 2 TABLETS DAILY FOR 21 DAYS ON, THEN 7 DAYS OFF EVERY 28 DAYS)
     Route: 048
     Dates: start: 201904, end: 202501
  4. LETROZOLE [Suspect]
     Active Substance: LETROZOLE
     Indication: Product used for unknown indication
     Dosage: 2.5 MG, QD (2.5 MG, 1 TAB(S) ORALLY ONCE A DAY)
     Route: 048
     Dates: start: 201904
  5. OMEPRAZOLE [Suspect]
     Active Substance: OMEPRAZOLE
     Indication: Product used for unknown indication
     Route: 048
  6. TRAMADOL [Suspect]
     Active Substance: TRAMADOL
     Indication: Product used for unknown indication
     Route: 048
  7. LISINOPRIL [Suspect]
     Active Substance: LISINOPRIL
     Indication: Product used for unknown indication
     Route: 048
  8. GABAPENTIN [Suspect]
     Active Substance: GABAPENTIN
     Indication: Product used for unknown indication
     Route: 048
  9. ACETAMINOPHEN [Suspect]
     Active Substance: ACETAMINOPHEN
     Indication: Product used for unknown indication
     Route: 048
  10. ATORVASTATIN [Suspect]
     Active Substance: ATORVASTATIN
     Indication: Product used for unknown indication
     Route: 048
  11. CALCIUM [Suspect]
     Active Substance: CALCIUM
     Indication: Product used for unknown indication
     Route: 065
  12. ALPRAZOLAM [Suspect]
     Active Substance: ALPRAZOLAM
     Indication: Product used for unknown indication
     Route: 048
  13. BUPROPION [Suspect]
     Active Substance: BUPROPION
     Indication: Product used for unknown indication
     Dosage: 100 MG, QD  (100 MG, TAKE 1 TABLET BY MOUTH TWICE DAILY)
     Route: 048
  14. OZEMPIC [Suspect]
     Active Substance: SEMAGLUTIDE
     Indication: Weight decreased
     Dosage: 0.5 MG, QW (0.5 MG, QW, 2 MG/3 ML/2 MGL3 ML (0.25 MG OR 0.5 MG DOSE))
     Route: 058
  15. WARFARIN [Suspect]
     Active Substance: WARFARIN
     Indication: Deep vein thrombosis
     Dosage: 2 MG, QD (2 MG, 1.5 TABLETS ON MON/WED/FRIDAY AND 1 TABLET ALL OTHER DAYS,)
     Route: 048
  16. WARFARIN [Suspect]
     Active Substance: WARFARIN
     Indication: Pulmonary embolism
  17. LEVOTHYROXINE [Suspect]
     Active Substance: LEVOTHYROXINE
     Indication: Product used for unknown indication
     Route: 048
  18. DULOXETINE [Suspect]
     Active Substance: DULOXETINE
     Indication: Product used for unknown indication
     Dosage: 30 MG, QD (30 MG, TAKE 1 CAPSULE BY MOUTH ONCE A DAY)
     Route: 048
  19. INSULIN HUMAN [Suspect]
     Active Substance: INSULIN HUMAN
     Indication: Product used for unknown indication
     Route: 058
  20. GINKGO [Suspect]
     Active Substance: GINKGO
     Indication: Product used for unknown indication
     Route: 048
  21. ASPIRIN [Suspect]
     Active Substance: ASPIRIN
     Indication: Product used for unknown indication
     Route: 048
  22. SODIUM CHLORIDE [Suspect]
     Active Substance: SODIUM CHLORIDE
     Indication: Product used for unknown indication
     Route: 048
  23. INSULIN GLARGINE [Suspect]
     Active Substance: INSULIN GLARGINE
     Indication: Product used for unknown indication
     Route: 058
  24. INSULIN LISPRO [Suspect]
     Active Substance: INSULIN LISPRO
     Indication: Product used for unknown indication
     Route: 058
  25. INSULIN LISPRO [Suspect]
     Active Substance: INSULIN LISPRO
     Route: 058
  26. INSULIN LISPRO [Suspect]
     Active Substance: INSULIN LISPRO
     Route: 058
  27. INSULIN LISPRO [Suspect]
     Active Substance: INSULIN LISPRO
     Route: 058
  28. INSULIN LISPRO [Suspect]
     Active Substance: INSULIN LISPRO
     Route: 058
  29. INSULIN LISPRO [Suspect]
     Active Substance: INSULIN LISPRO
     Route: 058
  30. INSULIN LISPRO [Suspect]
     Active Substance: INSULIN LISPRO
     Route: 058
  31. XGEVA [Suspect]
     Active Substance: DENOSUMAB
     Indication: Product used for unknown indication
     Route: 058
     Dates: start: 201909, end: 202210
  32. VITAMIN D [Suspect]
     Active Substance: VITAMIN D NOS
     Indication: Product used for unknown indication
     Route: 065

REACTIONS (4)
  - Cerebrovascular accident [Fatal]
  - Electrocardiogram QT prolonged [Unknown]
  - Head injury [Unknown]
  - Fall [Unknown]

NARRATIVE: CASE EVENT DATE: 20250101
